FAERS Safety Report 9728041 (Version 1)
Quarter: 2013Q4

REPORT INFORMATION
  Report Type: Spontaneous
  Country: US (occurrence: None)
  Receive Date: 20131203
  Receipt Date: 20131203
  Transmission Date: 20140711
  Serious: Yes (Life-Threatening, Hospitalization)
  Sender: FDA-Public Use
  Company Number: None

PATIENT
  Age: 48 Year
  Sex: Female
  Weight: 104.78 kg

DRUGS (4)
  1. XARELTO [Suspect]
     Indication: THROMBOSIS PROPHYLAXIS
     Route: 048
     Dates: start: 20130904, end: 20131009
  2. DILTIAZEM [Concomitant]
  3. EXTRA STRENGTH TYLENOL [Concomitant]
  4. MOTRIN [Concomitant]

REACTIONS (3)
  - Menorrhagia [None]
  - Volume blood decreased [None]
  - Haemorrhage [None]
